FAERS Safety Report 19419200 (Version 2)
Quarter: 2021Q3

REPORT INFORMATION
  Report Type: Spontaneous
  Country: US (occurrence: US)
  Receive Date: 20210615
  Receipt Date: 20210716
  Transmission Date: 20211014
  Serious: Yes (Hospitalization, Other)
  Sender: FDA-Public Use
  Company Number: US-PFIZER INC-2021640325

PATIENT
  Age: 80 Year
  Sex: Male

DRUGS (3)
  1. PEMBROLIZUMAB. [Concomitant]
     Active Substance: PEMBROLIZUMAB
     Indication: RENAL CELL CARCINOMA
     Dosage: CALLER THINKS DOSE IS 400MG INFUSION EVERY 6 WEEKS
  2. INLYTA [Suspect]
     Active Substance: AXITINIB
     Indication: RENAL CELL CARCINOMA
     Dosage: 5 MG
  3. INLYTA [Suspect]
     Active Substance: AXITINIB
     Dosage: 5 MG
     Dates: start: 20210612

REACTIONS (7)
  - Ejection fraction decreased [Not Recovered/Not Resolved]
  - Troponin increased [Unknown]
  - Pleural effusion [Unknown]
  - Dizziness [Not Recovered/Not Resolved]
  - Thyroid disorder [Unknown]
  - Dyspnoea [Not Recovered/Not Resolved]
  - Blood creatinine increased [Unknown]

NARRATIVE: CASE EVENT DATE: 20210630
